FAERS Safety Report 25330732 (Version 1)
Quarter: 2025Q2

REPORT INFORMATION
  Report Type: Spontaneous
  Country: US (occurrence: US)
  Receive Date: 20250519
  Receipt Date: 20250519
  Transmission Date: 20250716
  Serious: Yes (Hospitalization)
  Sender: MYLAN
  Company Number: US-MYLANLABS-2025M1040839

PATIENT
  Age: 61 Year
  Sex: Female
  Weight: 55.9 kg

DRUGS (4)
  1. ISOSULFAN BLUE [Suspect]
     Active Substance: ISOSULFAN BLUE
     Indication: Product used for unknown indication
  2. ISOSULFAN BLUE [Suspect]
     Active Substance: ISOSULFAN BLUE
     Route: 042
  3. ISOSULFAN BLUE [Suspect]
     Active Substance: ISOSULFAN BLUE
     Route: 042
  4. ISOSULFAN BLUE [Suspect]
     Active Substance: ISOSULFAN BLUE

REACTIONS (2)
  - Skin discolouration [Recovered/Resolved]
  - Incorrect route of product administration [Unknown]

NARRATIVE: CASE EVENT DATE: 20250512
